FAERS Safety Report 7146695-3 (Version None)
Quarter: 2010Q4

REPORT INFORMATION
  Report Type: 
  Country: None (occurrence: None)
  Receive Date: 20101208
  Receipt Date: 20101126
  Transmission Date: 20110411
  Serious: Yes (Hospitalization, Other)
  Sender: FDA-Public Use
  Company Number: JP-PFIZER INC-2010158044

PATIENT
  Age: 63 Year
  Sex: Female

DRUGS (12)
  1. AZULFIDINE [Suspect]
     Indication: RHEUMATOID ARTHRITIS
     Dosage: 1500 MG, UNK
     Route: 048
     Dates: start: 20091124
  2. AZULFIDINE [Suspect]
     Dosage: 1750 MG, UNK
     Route: 048
     Dates: start: 20100210
  3. AZULFIDINE [Suspect]
     Dosage: 2000 MG, UNK
     Route: 048
     Dates: start: 20100214
  4. AZULFIDINE [Suspect]
     Dosage: 2250 MG, UNK
     Route: 048
     Dates: start: 20100219
  5. AZULFIDINE [Suspect]
     Dosage: 2500 MG, UNK
     Route: 048
     Dates: start: 20100222
  6. AZULFIDINE [Suspect]
     Dosage: 2750 MG, UNK
     Route: 048
     Dates: start: 20100225
  7. AZULFIDINE [Suspect]
     Dosage: 3000 MG, UNK
     Route: 048
     Dates: start: 20100301, end: 20100428
  8. MAGNESIUM OXIDE [Concomitant]
     Dosage: 660 MG, UNK
     Route: 048
     Dates: start: 20100225
  9. CELECOXIB [Concomitant]
     Dosage: 200 MG, UNK
     Route: 048
     Dates: start: 20100225
  10. NEUROTROPIN [Concomitant]
     Dosage: 4 IU, 2X/DAY
     Route: 048
     Dates: start: 20100225
  11. RIBOFLAVIN TAB [Concomitant]
     Dosage: 20 MG, UNK
     Route: 048
     Dates: start: 20100225
  12. PREDNISOLONE [Concomitant]
     Dosage: 5 MG, UNK
     Route: 048
     Dates: start: 20100225

REACTIONS (3)
  - DRUG ERUPTION [None]
  - FACE OEDEMA [None]
  - GENERALISED ERYTHEMA [None]
